FAERS Safety Report 10151313 (Version 2)
Quarter: 2014Q2

REPORT INFORMATION
  Report Type: Spontaneous
  Country: US (occurrence: US)
  Receive Date: 20140502
  Receipt Date: 20140502
  Transmission Date: 20141212
  Serious: No
  Sender: FDA-Public Use
  Company Number: US-ASTRAZENECA-2013SE51123

PATIENT
  Sex: Male

DRUGS (1)
  1. PRILOSEC OTC [Suspect]
     Route: 048
     Dates: start: 20130702, end: 20130703

REACTIONS (2)
  - Diarrhoea [Not Recovered/Not Resolved]
  - Intentional product misuse [Unknown]
